FAERS Safety Report 5780875-4 (Version None)
Quarter: 2008Q2

REPORT INFORMATION
  Report Type: 
  Country: None (occurrence: None)
  Receive Date: 20080620
  Receipt Date: 20080609
  Transmission Date: 20081010
  Serious: Yes (Hospitalization, Disabling, Other)
  Sender: FDA-Public Use
  Company Number: GB-PFIZER INC-2008030362

PATIENT
  Sex: Female

DRUGS (1)
  1. CHANTIX [Suspect]
     Indication: SMOKING CESSATION THERAPY
     Route: 048
     Dates: start: 20080201, end: 20080301

REACTIONS (6)
  - EXCORIATION [None]
  - HYPERSENSITIVITY [None]
  - OVARIAN CYST [None]
  - PARKINSONIAN CRISIS [None]
  - PRURITUS [None]
  - STIFF-MAN SYNDROME [None]
